FAERS Safety Report 12193007 (Version 1)
Quarter: 2016Q1

REPORT INFORMATION
  Report Type: Report from Study
  Country: US (occurrence: US)
  Receive Date: 20160318
  Receipt Date: 20160318
  Transmission Date: 20160526
  Serious: Yes (Hospitalization)
  Sender: FDA-Public Use
  Company Number: US-BIOGEN-2012BI013797

PATIENT
  Age: 62 Year
  Sex: Female

DRUGS (8)
  1. PERCOCET [Concomitant]
     Active Substance: ACETAMINOPHEN\OXYCODONE HYDROCHLORIDE
     Indication: PRODUCT USED FOR UNKNOWN INDICATION
     Route: 065
     Dates: start: 201203, end: 20120305
  2. AVONEX [Suspect]
     Active Substance: INTERFERON BETA-1A
     Route: 030
     Dates: start: 20120228, end: 20120430
  3. AVONEX [Suspect]
     Active Substance: INTERFERON BETA-1A
     Indication: MULTIPLE SCLEROSIS
     Route: 030
     Dates: start: 20100310
  4. DILAUDID [Concomitant]
     Active Substance: HYDROMORPHONE HYDROCHLORIDE
     Indication: PRODUCT USED FOR UNKNOWN INDICATION
     Route: 065
     Dates: start: 20120305
  5. AVONEX [Suspect]
     Active Substance: INTERFERON BETA-1A
     Route: 030
     Dates: start: 20120501
  6. AVONEX [Suspect]
     Active Substance: INTERFERON BETA-1A
     Route: 030
     Dates: start: 201208
  7. AVONEX [Suspect]
     Active Substance: INTERFERON BETA-1A
     Route: 030
     Dates: start: 20120131, end: 20120228
  8. ACETAMINOPHEN. [Concomitant]
     Active Substance: ACETAMINOPHEN
     Indication: PRODUCT USED FOR UNKNOWN INDICATION
     Route: 065

REACTIONS (11)
  - Toxicity to various agents [Recovered/Resolved]
  - Lumbar radiculopathy [Recovered/Resolved]
  - Procedural pain [Unknown]
  - Drug-induced liver injury [Recovered/Resolved]
  - Oedema [Recovered/Resolved]
  - Gastric ulcer [Not Recovered/Not Resolved]
  - Hepatic enzyme increased [Recovered/Resolved]
  - Diarrhoea [Recovered/Resolved]
  - Spinal osteoarthritis [Recovered/Resolved]
  - Colitis [Recovered/Resolved]
  - Fungal oesophagitis [Not Recovered/Not Resolved]

NARRATIVE: CASE EVENT DATE: 2012
